FAERS Safety Report 12535810 (Version 1)
Quarter: 2016Q3

REPORT INFORMATION
  Report Type: Spontaneous
  Country: CA (occurrence: CA)
  Receive Date: 20160707
  Receipt Date: 20160707
  Transmission Date: 20161109
  Serious: Yes (Hospitalization, Disabling, Other)
  Sender: FDA-Public Use
  Company Number: CA-ASTRAZENECA-2016SE71362

PATIENT
  Age: 36 Year

DRUGS (4)
  1. SEROQUEL XR [Suspect]
     Active Substance: QUETIAPINE FUMARATE
     Indication: ANXIETY
     Dosage: 550.0MG UNKNOWN
     Route: 048
  2. DEXILANT [Concomitant]
     Active Substance: DEXLANSOPRAZOLE
  3. CARDURA [Concomitant]
     Active Substance: DOXAZOSIN MESYLATE
  4. REMERON RD [Concomitant]
     Active Substance: MIRTAZAPINE

REACTIONS (2)
  - Diabetes mellitus [Unknown]
  - Pancreatitis [Unknown]
